FAERS Safety Report 13071698 (Version 2)
Quarter: 2017Q1

REPORT INFORMATION
  Report Type: Spontaneous
  Country: DK (occurrence: DK)
  Receive Date: 20161229
  Receipt Date: 20170117
  Transmission Date: 20170428
  Serious: Yes (Other)
  Sender: FDA-Public Use
  Company Number: DK-TEVA-723190ACC

PATIENT
  Sex: Male

DRUGS (2)
  1. SERTRALINE [Suspect]
     Active Substance: SERTRALINE HYDROCHLORIDE
     Indication: PRODUCT USED FOR UNKNOWN INDICATION
     Dates: start: 2013, end: 2016
  2. QUETIAPINE. [Concomitant]
     Active Substance: QUETIAPINE
     Indication: INSOMNIA
     Dates: start: 2015

REACTIONS (18)
  - Hypercholesterolaemia [Unknown]
  - Somnolence [Unknown]
  - Asthenia [Unknown]
  - Toxicity to various agents [Unknown]
  - Thinking abnormal [Not Recovered/Not Resolved]
  - Anaemia [Unknown]
  - Hyperlipidaemia [Unknown]
  - Nervous system disorder [Not Recovered/Not Resolved]
  - Language disorder [Not Recovered/Not Resolved]
  - Insomnia [Unknown]
  - Headache [Unknown]
  - Dizziness [Unknown]
  - Painful erection [Unknown]
  - Erection increased [Unknown]
  - Learning disorder [Unknown]
  - Musculoskeletal disorder [Unknown]
  - Brain injury [Unknown]
  - Tremor [Unknown]
